FAERS Safety Report 22145009 (Version 2)
Quarter: 2023Q2

REPORT INFORMATION
  Report Type: Spontaneous
  Country: DE (occurrence: DE)
  Receive Date: 20230328
  Receipt Date: 20230405
  Transmission Date: 20230722
  Serious: Yes (Life-Threatening, Hospitalization, Other)
  Sender: FDA-Public Use
  Company Number: DE-ALKEM LABORATORIES LIMITED-DE-ALKEM-2023-03137

PATIENT
  Age: 51 Year
  Sex: Male

DRUGS (2)
  1. FINGOLIMOD [Suspect]
     Active Substance: FINGOLIMOD
     Indication: Relapsing-remitting multiple sclerosis
     Dosage: UNK
     Route: 065
  2. METHYLPREDNISOLONE [Suspect]
     Active Substance: METHYLPREDNISOLONE
     Indication: Multiple sclerosis relapse
     Dosage: 1000 MILLIGRAM, QD
     Route: 042

REACTIONS (7)
  - Gaze palsy [Unknown]
  - Respiratory failure [Unknown]
  - Tumefactive multiple sclerosis [Unknown]
  - Pneumonia aspiration [Unknown]
  - Human herpesvirus 6 infection [Unknown]
  - Mutism [Unknown]
  - Quadriplegia [Recovering/Resolving]
